FAERS Safety Report 5393945-X (Version None)
Quarter: 2007Q3

REPORT INFORMATION
  Report Type: 
  Country: None (occurrence: None)
  Receive Date: 20070723
  Receipt Date: 20061121
  Transmission Date: 20080115
  Serious: No
  Sender: FDA-Public Use
  Company Number: A0628527A

PATIENT
  Age: 60 Year
  Sex: Female

DRUGS (3)
  1. AVANDIA [Suspect]
     Dosage: 4MG TWICE PER DAY
     Route: 048
     Dates: end: 20060911
  2. BYETTA [Suspect]
     Route: 058
     Dates: start: 20060911, end: 20061030
  3. HUMALOG [Concomitant]

REACTIONS (5)
  - ABDOMINAL PAIN UPPER [None]
  - BLOOD GLUCOSE INCREASED [None]
  - FLUID RETENTION [None]
  - VOMITING [None]
  - WEIGHT DECREASED [None]
